FAERS Safety Report 26046032 (Version 1)
Quarter: 2025Q4

REPORT INFORMATION
  Report Type: Report from Study
  Country: US (occurrence: US)
  Receive Date: 20251114
  Receipt Date: 20251114
  Transmission Date: 20260117
  Serious: Yes (Other)
  Sender: MYLAN
  Company Number: US-MYLANLABS-2025M1096766

PATIENT
  Age: 26 Year
  Sex: Female

DRUGS (24)
  1. MYCOPHENOLATE MOFETIL [Suspect]
     Active Substance: MYCOPHENOLATE MOFETIL
     Indication: Antineutrophil cytoplasmic antibody positive
     Dosage: UNK, RECEIVED FOR MORE THAN 4 YEARS
  2. MYCOPHENOLATE MOFETIL [Suspect]
     Active Substance: MYCOPHENOLATE MOFETIL
     Indication: Anti-neutrophil cytoplasmic antibody positive vasculitis
     Dosage: UNK, RECEIVED FOR MORE THAN 4 YEARS
     Route: 065
  3. MYCOPHENOLATE MOFETIL [Suspect]
     Active Substance: MYCOPHENOLATE MOFETIL
     Dosage: UNK, RECEIVED FOR MORE THAN 4 YEARS
     Route: 065
  4. MYCOPHENOLATE MOFETIL [Suspect]
     Active Substance: MYCOPHENOLATE MOFETIL
     Dosage: UNK, RECEIVED FOR MORE THAN 4 YEARS
  5. RITUXIMAB [Suspect]
     Active Substance: RITUXIMAB
     Indication: Antineutrophil cytoplasmic antibody positive
     Dosage: 1000 MILLIGRAM, INITIAL TWO DOSES SEPARATED BY 2 TO 4 WEEKS
  6. RITUXIMAB [Suspect]
     Active Substance: RITUXIMAB
     Indication: Anti-neutrophil cytoplasmic antibody positive vasculitis
     Dosage: 1000 MILLIGRAM, INITIAL TWO DOSES SEPARATED BY 2 TO 4 WEEKS
  7. RITUXIMAB [Suspect]
     Active Substance: RITUXIMAB
     Dosage: 1000 MILLIGRAM, INITIAL TWO DOSES SEPARATED BY 2 TO 4 WEEKS
     Route: 042
  8. RITUXIMAB [Suspect]
     Active Substance: RITUXIMAB
     Dosage: 1000 MILLIGRAM, INITIAL TWO DOSES SEPARATED BY 2 TO 4 WEEKS
     Route: 042
  9. RITUXIMAB [Suspect]
     Active Substance: RITUXIMAB
     Dosage: 1000 MILLIGRAM, EVERY 4 TO 6 MONTHS
  10. RITUXIMAB [Suspect]
     Active Substance: RITUXIMAB
     Dosage: 1000 MILLIGRAM, EVERY 4 TO 6 MONTHS
  11. RITUXIMAB [Suspect]
     Active Substance: RITUXIMAB
     Dosage: 1000 MILLIGRAM, EVERY 4 TO 6 MONTHS
     Route: 042
  12. RITUXIMAB [Suspect]
     Active Substance: RITUXIMAB
     Dosage: 1000 MILLIGRAM, EVERY 4 TO 6 MONTHS
     Route: 042
  13. AZATHIOPRINE [Suspect]
     Active Substance: AZATHIOPRINE
     Indication: Antineutrophil cytoplasmic antibody positive
     Dosage: UNK, RECEIVED FOR MORE THAN 4 YEARS
  14. AZATHIOPRINE [Suspect]
     Active Substance: AZATHIOPRINE
     Indication: Anti-neutrophil cytoplasmic antibody positive vasculitis
     Dosage: UNK, RECEIVED FOR MORE THAN 4 YEARS
     Route: 065
  15. AZATHIOPRINE [Suspect]
     Active Substance: AZATHIOPRINE
     Dosage: UNK, RECEIVED FOR MORE THAN 4 YEARS
     Route: 065
  16. AZATHIOPRINE [Suspect]
     Active Substance: AZATHIOPRINE
     Dosage: UNK, RECEIVED FOR MORE THAN 4 YEARS
  17. CYCLOPHOSPHAMIDE [Suspect]
     Active Substance: CYCLOPHOSPHAMIDE
     Indication: Antineutrophil cytoplasmic antibody positive
     Dosage: UNK , CYCLE
  18. CYCLOPHOSPHAMIDE [Suspect]
     Active Substance: CYCLOPHOSPHAMIDE
     Indication: Anti-neutrophil cytoplasmic antibody positive vasculitis
     Dosage: UNK , CYCLE
     Route: 065
  19. CYCLOPHOSPHAMIDE [Suspect]
     Active Substance: CYCLOPHOSPHAMIDE
     Dosage: UNK , CYCLE
     Route: 065
  20. CYCLOPHOSPHAMIDE [Suspect]
     Active Substance: CYCLOPHOSPHAMIDE
     Dosage: UNK , CYCLE
  21. AVACOPAN [Suspect]
     Active Substance: AVACOPAN
     Indication: Antineutrophil cytoplasmic antibody positive
     Dosage: UNK, FOR MORE THAN 2 YEARS
  22. AVACOPAN [Suspect]
     Active Substance: AVACOPAN
     Indication: Anti-neutrophil cytoplasmic antibody positive vasculitis
     Dosage: UNK, FOR MORE THAN 2 YEARS
     Route: 065
  23. AVACOPAN [Suspect]
     Active Substance: AVACOPAN
     Dosage: UNK, FOR MORE THAN 2 YEARS
     Route: 065
  24. AVACOPAN [Suspect]
     Active Substance: AVACOPAN
     Dosage: UNK, FOR MORE THAN 2 YEARS

REACTIONS (2)
  - B-lymphocyte count decreased [Recovering/Resolving]
  - Product use in unapproved indication [Unknown]
